FAERS Safety Report 11286031 (Version 1)
Quarter: 2015Q3

REPORT INFORMATION
  Report Type: Report from Study
  Country: ES (occurrence: ES)
  Receive Date: 20150721
  Receipt Date: 20150721
  Transmission Date: 20151125
  Serious: Yes (Death)
  Sender: FDA-Public Use
  Company Number: ES-ROCHE-1608510

PATIENT

DRUGS (1)
  1. RITUXIMAB [Suspect]
     Active Substance: RITUXIMAB
     Indication: DIFFUSE LARGE B-CELL LYMPHOMA
     Route: 065

REACTIONS (10)
  - Biliary sepsis [Fatal]
  - Hepatotoxicity [Unknown]
  - Pneumonia [Fatal]
  - Urosepsis [Fatal]
  - Cardiac failure [Fatal]
  - Respiratory tract infection fungal [Fatal]
  - Pulmonary sepsis [Fatal]
  - Intestinal perforation [Fatal]
  - Respiratory tract infection [Fatal]
  - Septic shock [Fatal]
